FAERS Safety Report 25742384 (Version 2)
Quarter: 2025Q4

REPORT INFORMATION
  Report Type: Spontaneous
  Country: US (occurrence: US)
  Receive Date: 20250829
  Receipt Date: 20251008
  Transmission Date: 20260118
  Serious: No
  Sender: CALLIDITAS THERAPEUTICS AB
  Company Number: US-Calliditas-2025CAL02584

PATIENT
  Age: 61 Year
  Sex: Male

DRUGS (10)
  1. TARPEYO [Suspect]
     Active Substance: BUDESONIDE
     Indication: IgA nephropathy
     Route: 048
     Dates: start: 20250305
  2. ALDACTONE [Concomitant]
     Active Substance: SPIRONOLACTONE
  3. ATROVENT HFA [Concomitant]
     Active Substance: IPRATROPIUM BROMIDE
  4. CIALIS [Concomitant]
     Active Substance: TADALAFIL
  5. CRESTOR [Concomitant]
     Active Substance: ROSUVASTATIN CALCIUM
  6. ELIQUIS [Concomitant]
     Active Substance: APIXABAN
  7. KENALOG [Concomitant]
     Active Substance: TRIAMCINOLONE ACETONIDE
  8. ZETIA [Concomitant]
     Active Substance: EZETIMIBE
  9. PREDNISONE [Concomitant]
     Active Substance: PREDNISONE
  10. FILSPARI [Concomitant]
     Active Substance: SPARSENTAN

REACTIONS (5)
  - Cough [Recovered/Resolved]
  - Skin papilloma [Recovered/Resolved]
  - Muscle spasms [Unknown]
  - Weight decreased [Unknown]
  - Acne [Unknown]

NARRATIVE: CASE EVENT DATE: 20250601
